FAERS Safety Report 4771247-X (Version None)
Quarter: 2005Q3

REPORT INFORMATION
  Report Type: 
  Country: None (occurrence: None)
  Receive Date: 20050912
  Receipt Date: 20050722
  Transmission Date: 20060218
  Serious: No
  Sender: FDA-Public Use
  Company Number: 2005-01558

PATIENT
  Age: 44 Year
  Sex: Female

DRUGS (5)
  1. VELCADE [Suspect]
     Indication: MULTIPLE MYELOMA
     Dosage: 2.00 MG, 2/WEEK, IV BOLUS
     Route: 040
     Dates: start: 20041201, end: 20050718
  2. PROCRIT [Concomitant]
  3. ZOMETA [Concomitant]
  4. DEXAMETHASONE [Concomitant]
  5. THALIDOMIDE [Concomitant]

REACTIONS (1)
  - PALPITATIONS [None]
